FAERS Safety Report 8062880-0 (Version None)
Quarter: 2012Q1

REPORT INFORMATION
  Report Type: 
  Country: None (occurrence: None)
  Receive Date: 20120123
  Receipt Date: 20120113
  Transmission Date: 20120608
  Serious: Yes (Death, Hospitalization)
  Sender: FDA-Public Use
  Company Number: GB-PFIZER INC-2012016133

PATIENT
  Age: 76 Year
  Sex: Female

DRUGS (2)
  1. RANIBIZUMAB [Suspect]
  2. AMIODARONE HCL [Suspect]

REACTIONS (3)
  - ATRIAL FIBRILLATION [None]
  - PNEUMONIA [None]
  - PNEUMONITIS [None]
